FAERS Safety Report 22106956 (Version 1)
Quarter: 2023Q1

REPORT INFORMATION
  Report Type: Spontaneous
  Country: US (occurrence: US)
  Receive Date: 20230317
  Receipt Date: 20230317
  Transmission Date: 20230417
  Serious: No
  Sender: FDA-Public Use
  Company Number: US-SANOFI-01529981

PATIENT
  Age: 73 Year
  Sex: Female

DRUGS (1)
  1. LANTUS SOLOSTAR [Suspect]
     Active Substance: INSULIN GLARGINE
     Indication: Type 2 diabetes mellitus
     Dosage: 38 UNITS AM 30 UNITS PM BID

REACTIONS (4)
  - Inappropriate schedule of product administration [Unknown]
  - Product storage error [Unknown]
  - Accidental exposure to product [Unknown]
  - Visual impairment [Unknown]
